FAERS Safety Report 5153018-8 (Version None)
Quarter: 2006Q4

REPORT INFORMATION
  Report Type: 
  Country: None (occurrence: None)
  Receive Date: 20061117
  Receipt Date: 20061109
  Transmission Date: 20070319
  Serious: Yes (Other)
  Sender: FDA-Public Use
  Company Number: 2006UW23403

PATIENT
  Age: 59 Year
  Sex: Male
  Weight: 58.1 kg

DRUGS (4)
  1. SEROQUEL [Suspect]
     Indication: BIPOLAR DISORDER
     Route: 048
  2. ATIVAN [Concomitant]
  3. RISPERDAL [Concomitant]
  4. ZYPREXA [Concomitant]

REACTIONS (4)
  - BLOOD PRESSURE FLUCTUATION [None]
  - EATING DISORDER [None]
  - MYOCARDIAL INFARCTION [None]
  - WEIGHT INCREASED [None]
